FAERS Safety Report 5390526-9 (Version None)
Quarter: 2007Q3

REPORT INFORMATION
  Report Type: 
  Country: None (occurrence: None)
  Receive Date: 20070718
  Receipt Date: 20070322
  Transmission Date: 20080115
  Serious: No
  Sender: FDA-Public Use
  Company Number: US-KINGPHARMUSA00001-K200700349

PATIENT

DRUGS (1)
  1. LEVOXYL [Suspect]
     Dosage: 88 MCG, UNK

REACTIONS (3)
  - HYPERSENSITIVITY [None]
  - MALAISE [None]
  - VOMITING [None]
